FAERS Safety Report 12206961 (Version 1)
Quarter: 2016Q1

REPORT INFORMATION
  Report Type: Other
  Country: US (occurrence: US)
  Receive Date: 20160324
  Receipt Date: 20160324
  Transmission Date: 20160526
  Serious: Yes (Other)
  Sender: FDA-Public Use
  Company Number: US-ACORDA-ACO_122310_2016

PATIENT
  Age: 63 Year
  Sex: Female
  Weight: 104.31 kg

DRUGS (1)
  1. AMPYRA [Suspect]
     Active Substance: DALFAMPRIDINE
     Indication: DYSSTASIA
     Dosage: 10 MG, Q 12 HRS
     Route: 048
     Dates: start: 201503

REACTIONS (5)
  - Speech disorder [Recovered/Resolved]
  - Off label use [Not Recovered/Not Resolved]
  - Cerebrovascular accident [Recovered/Resolved]
  - Extra dose administered [Recovered/Resolved]
  - Gait disturbance [Not Recovered/Not Resolved]

NARRATIVE: CASE EVENT DATE: 201503
